FAERS Safety Report 25312322 (Version 1)
Quarter: 2025Q2

REPORT INFORMATION
  Report Type: Spontaneous
  Country: FR (occurrence: FR)
  Receive Date: 20250514
  Receipt Date: 20250514
  Transmission Date: 20250717
  Serious: Yes (Death, Hospitalization, Other)
  Sender: Steriscience PTE
  Company Number: FR-STERISCIENCE B.V.-2025-ST-000896

PATIENT
  Age: 69 Year
  Sex: Female

DRUGS (2)
  1. PIPERACILLIN SODIUM\TAZOBACTAM SODIUM [Suspect]
     Active Substance: PIPERACILLIN SODIUM\TAZOBACTAM SODIUM
     Indication: Necrotising fasciitis
     Route: 042
  2. SILTUXIMAB [Concomitant]
     Active Substance: SILTUXIMAB
     Indication: Cytokine release syndrome
     Route: 065

REACTIONS (1)
  - Drug ineffective [Fatal]
